FAERS Safety Report 16779162 (Version 1)
Quarter: 2019Q3

REPORT INFORMATION
  Report Type: Spontaneous
  Country: US (occurrence: US)
  Receive Date: 20190906
  Receipt Date: 20190906
  Transmission Date: 20191005
  Serious: No
  Sender: FDA-Public Use
  Company Number: US-TEVA-2019-US-1102998

PATIENT
  Sex: Female

DRUGS (2)
  1. PREDNISONE. [Suspect]
     Active Substance: PREDNISONE
     Indication: SYSTEMIC LUPUS ERYTHEMATOSUS
     Dosage: DOSE STRENGTH:  5?WHITE, ROUND, WITH DAN ON ONE SIDE AND 5052 ON THE OTHER SIDE
     Dates: start: 201908
  2. PREDNISONE. [Suspect]
     Active Substance: PREDNISONE
     Indication: PAIN

REACTIONS (5)
  - Diarrhoea [Unknown]
  - Product substitution issue [Unknown]
  - Abdominal discomfort [Unknown]
  - Abdominal pain upper [Unknown]
  - Nausea [Unknown]

NARRATIVE: CASE EVENT DATE: 201908
